FAERS Safety Report 9543041 (Version 1)
Quarter: 2013Q3

REPORT INFORMATION
  Report Type: Spontaneous
  Country: US (occurrence: US)
  Receive Date: 20130923
  Receipt Date: 20130923
  Transmission Date: 20140515
  Serious: Yes (Other)
  Sender: FDA-Public Use
  Company Number: PHHY2013US103446

PATIENT
  Age: 36 Year
  Sex: Male

DRUGS (4)
  1. LEVETIRACETAM [Suspect]
     Dosage: 250 MG, BID
  2. LEVETIRACETAM [Suspect]
     Dosage: 125 MG, BID
  3. AMPHETAMINE MIXED SALTS [Concomitant]
     Dosage: 10 MG, BID
  4. AMPHETAMINE MIXED SALTS [Concomitant]

REACTIONS (2)
  - Sedation [Recovered/Resolved]
  - Sexual dysfunction [Recovered/Resolved]
